FAERS Safety Report 12604006 (Version 2)
Quarter: 2016Q3

REPORT INFORMATION
  Report Type: Spontaneous
  Country: JP (occurrence: JP)
  Receive Date: 20160728
  Receipt Date: 20160809
  Transmission Date: 20161109
  Serious: Yes (Hospitalization)
  Sender: FDA-Public Use
  Company Number: JP-FERRINGPH-2016FE03370

PATIENT

DRUGS (2)
  1. GONAX [Suspect]
     Active Substance: DEGARELIX
     Dosage: UNK
     Route: 065
  2. GONAX [Suspect]
     Active Substance: DEGARELIX
     Indication: PROSTATIC SPECIFIC ANTIGEN INCREASED
     Dosage: 240 MG, MONTHLY
     Route: 058
     Dates: start: 20160628, end: 20160628

REACTIONS (2)
  - Off label use [Recovering/Resolving]
  - Delusion [Recovering/Resolving]

NARRATIVE: CASE EVENT DATE: 20160628
